FAERS Safety Report 24448035 (Version 2)
Quarter: 2024Q4

REPORT INFORMATION
  Report Type: Spontaneous
  Country: US (occurrence: US)
  Receive Date: 20241016
  Receipt Date: 20241022
  Transmission Date: 20250115
  Serious: Yes (Other)
  Sender: BIOMARIN
  Company Number: US-SA-2024SA295606

PATIENT

DRUGS (1)
  1. LARONIDASE [Suspect]
     Active Substance: LARONIDASE
     Indication: Mucopolysaccharidosis I
     Dosage: 11.6 (UNIT UNSPECIFIED), QW
     Route: 042

REACTIONS (12)
  - Corneal opacity [Unknown]
  - Asthma [Unknown]
  - Musculoskeletal stiffness [Unknown]
  - Pain in extremity [Unknown]
  - Toe walking [Unknown]
  - Fatigue [Unknown]
  - Dysgraphia [Unknown]
  - Memory impairment [Unknown]
  - Learning disorder [Unknown]
  - Sleep disorder [Unknown]
  - Finger deformity [Unknown]
  - Arthralgia [Unknown]
